FAERS Safety Report 17369530 (Version 1)
Quarter: 2020Q1

REPORT INFORMATION
  Report Type: Report from Study
  Country: None (occurrence: ES)
  Receive Date: 20200204
  Receipt Date: 20200204
  Transmission Date: 20200409
  Serious: Yes (Hospitalization, Other)
  Sender: FDA-Public Use
  Company Number: ES-ABBVIE-20K-144-3258446-00

PATIENT
  Sex: Male

DRUGS (2)
  1. DUODOPA [Suspect]
     Active Substance: CARBIDOPA\LEVODOPA
     Route: 050
     Dates: start: 201912
  2. DUODOPA [Suspect]
     Active Substance: CARBIDOPA\LEVODOPA
     Indication: PARKINSON^S DISEASE
     Route: 050
     Dates: start: 20160915, end: 201912

REACTIONS (9)
  - Hypotonia [Recovering/Resolving]
  - Cerebral haematoma [Recovering/Resolving]
  - Aphasia [Recovering/Resolving]
  - Deep brain stimulation [Unknown]
  - Cognitive disorder [Not Recovered/Not Resolved]
  - Wound [Recovering/Resolving]
  - Intentional self-injury [Unknown]
  - Gastrointestinal injury [Recovering/Resolving]
  - Stoma site erythema [Not Recovered/Not Resolved]

NARRATIVE: CASE EVENT DATE: 2019
